FAERS Safety Report 15493477 (Version 1)
Quarter: 2018Q4

REPORT INFORMATION
  Report Type: Report from Study
  Country: NL (occurrence: NL)
  Receive Date: 20181012
  Receipt Date: 20181012
  Transmission Date: 20190205
  Serious: Yes (Disabling)
  Sender: FDA-Public Use
  Company Number: NL-AMGEN-NLDSL2018125331

PATIENT
  Age: 60 Year
  Sex: Male

DRUGS (2)
  1. EZETIMIBE. [Concomitant]
     Active Substance: EZETIMIBE
     Dosage: 1 UNIT, UNK
     Dates: start: 20120403
  2. REPATHA [Suspect]
     Active Substance: EVOLOCUMAB
     Indication: HYPERCHOLESTEROLAEMIA
     Dosage: 140 MG/ML, Q2WK
     Route: 058
     Dates: start: 20170927

REACTIONS (1)
  - Musculoskeletal stiffness [Unknown]
